FAERS Safety Report 5618778-8 (Version None)
Quarter: 2008Q1

REPORT INFORMATION
  Report Type: 
  Country: None (occurrence: None)
  Receive Date: 20080207
  Receipt Date: 20080201
  Transmission Date: 20080703
  Serious: Yes (Hospitalization, Other)
  Sender: FDA-Public Use
  Company Number: FR-BRISTOL-MYERS SQUIBB COMPANY-14061816

PATIENT
  Age: 73 Year
  Sex: Male

DRUGS (4)
  1. SPRYCEL [Suspect]
     Indication: ACUTE LYMPHOCYTIC LEUKAEMIA
     Dosage: 03JAN08-10JAN08 140MG,11JAN08-16JAN08 280MG
     Route: 048
     Dates: start: 20080118
  2. VINCRISTINE [Suspect]
     Indication: ACUTE LYMPHOCYTIC LEUKAEMIA
     Dosage: GIVEN ON DAY1, DAY8 AND DAY15
     Dates: start: 20080103
  3. METHOTREXATE [Suspect]
     Indication: ACUTE LYMPHOCYTIC LEUKAEMIA
     Dosage: GIVEN  ON DAY1
     Dates: start: 20080103
  4. DEXAMETHASONE TAB [Concomitant]
     Dosage: GIVEN ON D1, D2, D8, D9, D15, AND D16.

REACTIONS (2)
  - CONFUSIONAL STATE [None]
  - THROMBOTIC MICROANGIOPATHY [None]
